FAERS Safety Report 17152105 (Version 2)
Quarter: 2019Q4

REPORT INFORMATION
  Report Type: Spontaneous
  Country: BG (occurrence: BG)
  Receive Date: 20191213
  Receipt Date: 20191227
  Transmission Date: 20200122
  Serious: Yes (Other)
  Sender: FDA-Public Use
  Company Number: BG-AMGEN-BGRSP2019201978

PATIENT
  Age: 66 Year
  Sex: Male

DRUGS (7)
  1. VIT D [Concomitant]
     Active Substance: VITAMIN D NOS
  2. XGEVA [Suspect]
     Active Substance: DENOSUMAB
     Indication: METASTASES TO BONE
     Dosage: UNK UNK, Q4WK
     Route: 065
     Dates: start: 201704
  3. CALCIUM [Concomitant]
     Active Substance: CALCIUM
  4. DOCETAXEL. [Concomitant]
     Active Substance: DOCETAXEL
  5. LH RH [Concomitant]
     Dosage: UNK
     Dates: start: 201704
  6. XGEVA [Suspect]
     Active Substance: DENOSUMAB
     Indication: PROSTATE CANCER
  7. BICALUTAMIDE. [Concomitant]
     Active Substance: BICALUTAMIDE
     Dosage: UNK
     Dates: start: 201704

REACTIONS (1)
  - Prostate cancer metastatic [Unknown]
